FAERS Safety Report 5389945-6 (Version None)
Quarter: 2007Q3

REPORT INFORMATION
  Report Type: 
  Country: None (occurrence: None)
  Receive Date: 20070716
  Receipt Date: 20070716
  Transmission Date: 20080115
  Serious: Yes (Life-Threatening)
  Sender: FDA-Public Use
  Company Number: None

PATIENT
  Age: 73 Year
  Sex: Male

DRUGS (8)
  1. QUINAPRIL [Suspect]
     Dosage: 10 MG PO
     Route: 048
  2. ZOCOR [Concomitant]
  3. ALDACTONE [Concomitant]
  4. AMIODARONE HCL [Concomitant]
  5. TOPROL-XL [Concomitant]
  6. LASIX [Concomitant]
  7. ASPIRIN [Concomitant]
  8. GLIPIZIDE [Concomitant]

REACTIONS (5)
  - ANGIOEDEMA [None]
  - DYSPNOEA [None]
  - LIP SWELLING [None]
  - OXYGEN SATURATION DECREASED [None]
  - SWOLLEN TONGUE [None]
